FAERS Safety Report 9332902 (Version 1)
Quarter: 2013Q2

REPORT INFORMATION
  Report Type: Spontaneous
  Country: KR (occurrence: KR)
  Receive Date: 20130606
  Receipt Date: 20130606
  Transmission Date: 20140414
  Serious: Yes (Hospitalization)
  Sender: FDA-Public Use
  Company Number: KR-BAYER-2013-066072

PATIENT
  Sex: Female

DRUGS (1)
  1. MIRENA [Suspect]
     Indication: CONTRACEPTION
     Dosage: UNK
     Route: 015
     Dates: start: 201108

REACTIONS (6)
  - Ectopic pregnancy with intrauterine device [Recovered/Resolved]
  - Drug ineffective [None]
  - Fallopian tube disorder [None]
  - Abdominal pain [None]
  - Shock haemorrhagic [None]
  - Hypomenorrhoea [None]
